FAERS Safety Report 9393076 (Version 1)
Quarter: 2013Q3

REPORT INFORMATION
  Report Type: Spontaneous
  Country: DK (occurrence: CA)
  Receive Date: 20130710
  Receipt Date: 20130710
  Transmission Date: 20140515
  Serious: Yes (Hospitalization)
  Sender: FDA-Public Use
  Company Number: CA-FRI-1000046562

PATIENT
  Age: 63 Year
  Sex: Female

DRUGS (2)
  1. ESCITALOPRAM [Suspect]
     Indication: DEPRESSION
     Dosage: 10 MG
     Route: 048
     Dates: start: 201209, end: 20130620
  2. CALCIUM AND VITAMINE D [Concomitant]
     Indication: OSTEOPOROSIS
     Dosage: 500 MG/400 UI
     Route: 048

REACTIONS (1)
  - Hypersensitivity vasculitis [Not Recovered/Not Resolved]
